FAERS Safety Report 4659122-2 (Version None)
Quarter: 2005Q2

REPORT INFORMATION
  Report Type: 
  Country: None (occurrence: None)
  Receive Date: 20050511
  Receipt Date: 20040901
  Transmission Date: 20051028
  Serious: Yes (Hospitalization)
  Sender: FDA-Public Use
  Company Number: 200413258FR

PATIENT
  Age: 80 Year
  Sex: Female
  Weight: 86 kg

DRUGS (6)
  1. TRAMADOL HCL [Suspect]
     Route: 048
  2. FUROSEMIDE [Suspect]
     Route: 048
  3. ACEBUTOLOL [Suspect]
     Route: 048
  4. PREVISCAN [Suspect]
     Route: 048
  5. LYTOS [Suspect]
     Route: 048
     Dates: start: 20011215, end: 20040801
  6. ENALAPRIL MALEATE [Suspect]
     Route: 048

REACTIONS (3)
  - HYPOALBUMINAEMIA [None]
  - NEPHROTIC SYNDROME [None]
  - PROTEINURIA [None]
